FAERS Safety Report 9153663 (Version 2)
Quarter: 2013Q1

REPORT INFORMATION
  Report Type: Spontaneous
  Country: US (occurrence: None)
  Receive Date: 20130206
  Receipt Date: 20130308
  Transmission Date: 20140127
  Serious: Yes (Other)
  Sender: FDA-Public Use
  Company Number: 2013P1001499

PATIENT
  Age: 49 Year
  Sex: Female
  Weight: 122.93 kg

DRUGS (7)
  1. PARNATE TABLETS [Suspect]
     Route: 048
     Dates: start: 1990
  2. ASPIRIN [Concomitant]
  3. LISINOPRIL [Concomitant]
  4. METFORMIN [Concomitant]
  5. METOPROLOL [Concomitant]
  6. OMEPRAZOLE [Concomitant]
  7. SIMVASTATIN [Concomitant]

REACTIONS (1)
  - Obesity [None]
